FAERS Safety Report 16681779 (Version 2)
Quarter: 2019Q3

REPORT INFORMATION
  Report Type: Spontaneous
  Country: RO (occurrence: RO)
  Receive Date: 20190808
  Receipt Date: 20190823
  Transmission Date: 20191004
  Serious: Yes (Hospitalization, Other)
  Sender: FDA-Public Use
  Company Number: RO-SUN PHARMACEUTICAL INDUSTRIES LTD-2019RR-216786

PATIENT
  Age: 64 Year
  Sex: Female

DRUGS (9)
  1. FLUOXETINE [Suspect]
     Active Substance: FLUOXETINE HYDROCHLORIDE
     Dosage: 40 MILLIGRAM, DAILY
     Route: 048
  2. AMITRIPTYLINE [Suspect]
     Active Substance: AMITRIPTYLINE
     Indication: DEPRESSION
     Dosage: 150 MILLIGRAM, DAILY
     Route: 048
  3. FLUOXETINE [Suspect]
     Active Substance: FLUOXETINE HYDROCHLORIDE
     Indication: DEPRESSION
     Dosage: 20 MILLIGRAM, DAILY
     Route: 048
  4. AGOMELATINE [Suspect]
     Active Substance: AGOMELATINE
     Indication: DEPRESSION
     Dosage: 50 MILLIGRAM, DAILY
     Route: 048
  5. CARBAMAZEPINE. [Suspect]
     Active Substance: CARBAMAZEPINE
     Dosage: 600 MILLIGRAM, DAILY
     Route: 048
  6. VALPROIC ACID. [Suspect]
     Active Substance: VALPROIC ACID
     Indication: DEPRESSION
     Dosage: 300 MILLIGRAM, TID
     Route: 048
  7. ENALAPRIL [Concomitant]
     Active Substance: ENALAPRIL
     Indication: HYPERTENSION
     Dosage: 10 MILLIGRAM, BID
     Route: 065
  8. CARBAMAZEPINE. [Suspect]
     Active Substance: CARBAMAZEPINE
     Indication: DEPRESSION
     Dosage: 200 MILLIGRAM, DAILY
     Route: 048
  9. SERTRALINE [Suspect]
     Active Substance: SERTRALINE HYDROCHLORIDE
     Indication: DEPRESSION
     Dosage: 150 MILLIGRAM, DAILY
     Route: 048

REACTIONS (5)
  - Orthostatic hypotension [Unknown]
  - Dry mouth [Unknown]
  - Drug resistance [Unknown]
  - Treatment noncompliance [Unknown]
  - Somnolence [Unknown]
